FAERS Safety Report 4519429-6 (Version None)
Quarter: 2004Q4

REPORT INFORMATION
  Report Type: 
  Country: None (occurrence: None)
  Receive Date: 20041202
  Receipt Date: 20041119
  Transmission Date: 20050328
  Serious: Yes (Other)
  Sender: FDA-Public Use
  Company Number: 2004097026

PATIENT
  Age: 82 Year
  Sex: Male

DRUGS (2)
  1. CARDURAN (DOXAZOSIN) [Suspect]
     Indication: BENIGN PROSTATIC HYPERPLASIA
     Dosage: 4 MG (4 MG, 1 IN 1 D), ORAL
     Route: 048
     Dates: start: 20020201
  2. CAPTOPRIL [Concomitant]

REACTIONS (2)
  - AMNESIA [None]
  - NEOPLASM PROSTATE [None]
